FAERS Safety Report 4853914-2 (Version None)
Quarter: 2005Q4

REPORT INFORMATION
  Report Type: 
  Country: None (occurrence: None)
  Receive Date: 20051213
  Receipt Date: 20051205
  Transmission Date: 20060501
  Serious: Yes (Death, Life-Threatening)
  Sender: FDA-Public Use
  Company Number: OXYA20050015

PATIENT
  Age: 39 Year
  Sex: Male

DRUGS (4)
  1. OXYCODONE AND ACETAMINOPHEN [Suspect]
     Dosage: PO
     Route: 048
     Dates: start: 20040101, end: 20040101
  2. TRAMADOL HCL [Suspect]
     Dosage: PO
     Route: 048
     Dates: start: 20040101, end: 20040101
  3. DIAZEPAM [Suspect]
     Dosage: PO
     Route: 048
     Dates: start: 20040101, end: 20040101
  4. IBUPROFEN [Suspect]
     Dosage: 800 MG ONCE PO
     Route: 048
     Dates: start: 20040101, end: 20040101

REACTIONS (10)
  - BODY TEMPERATURE INCREASED [None]
  - CARDIAC ARREST [None]
  - GENERAL PHYSICAL HEALTH DETERIORATION [None]
  - HYPOTENSION [None]
  - MULTIPLE DRUG OVERDOSE INTENTIONAL [None]
  - RESPIRATORY DISTRESS [None]
  - SOMNOLENCE [None]
  - SUICIDE ATTEMPT [None]
  - THERAPY NON-RESPONDER [None]
  - TRANSAMINASES INCREASED [None]
